FAERS Safety Report 20101535 (Version 2)
Quarter: 2021Q4

REPORT INFORMATION
  Report Type: Spontaneous
  Country: MX (occurrence: MX)
  Receive Date: 20211123
  Receipt Date: 20211214
  Transmission Date: 20220303
  Serious: Yes (Death, Life-Threatening, Other)
  Sender: FDA-Public Use
  Company Number: MX-AMGEN-MEXSP2021182025

PATIENT
  Age: 28 Year
  Sex: Female

DRUGS (12)
  1. BLINATUMOMAB [Suspect]
     Active Substance: BLINATUMOMAB
     Indication: Chronic myeloid leukaemia
     Dosage: UNK
     Route: 065
     Dates: start: 201808
  2. PONATINIB [Concomitant]
     Active Substance: PONATINIB
     Dosage: 45 MILLIGRAM, QD
     Dates: start: 201711
  3. HYDROXYUREA [Concomitant]
     Active Substance: HYDROXYUREA
     Dosage: UNK
     Dates: start: 201808
  4. AZACITIDINE [Concomitant]
     Active Substance: AZACITIDINE
     Dosage: UNK
  5. VENETOCLAX [Concomitant]
     Active Substance: VENETOCLAX
     Dosage: UNK
  6. GEMTUZUMAB OZOGAMICIN [Concomitant]
     Active Substance: GEMTUZUMAB OZOGAMICIN
     Dosage: 4.5 MILLIGRAM, QD
     Dates: start: 201809
  7. CYTARABINE [Concomitant]
     Active Substance: CYTARABINE
     Dosage: 3 GRAM PER SQUARE METER, BID
     Dates: start: 2018
  8. CYCLOPHOSPHAMIDE [Concomitant]
     Active Substance: CYCLOPHOSPHAMIDE
  9. FLUDARABINE [Concomitant]
     Active Substance: FLUDARABINE PHOSPHATE
  10. TACROLIMUS [Concomitant]
     Active Substance: TACROLIMUS
  11. OSELTAMIVIR [Concomitant]
     Active Substance: OSELTAMIVIR
  12. DAUNORUBICIN [Concomitant]
     Active Substance: DAUNORUBICIN

REACTIONS (10)
  - Immunosuppression [Fatal]
  - Pneumonia [Fatal]
  - Graft versus host disease [Recovered/Resolved]
  - Leukaemic infiltration extramedullary [Recovered/Resolved]
  - Escherichia bacteraemia [Recovered/Resolved]
  - Viral upper respiratory tract infection [Recovered/Resolved]
  - Febrile neutropenia [Recovered/Resolved]
  - Drug effective for unapproved indication [Unknown]
  - Off label use [Unknown]
  - White blood cell count decreased [Recovered/Resolved]

NARRATIVE: CASE EVENT DATE: 20180101
